FAERS Safety Report 7439517-4 (Version None)
Quarter: 2011Q2

REPORT INFORMATION
  Report Type: 
  Country: None (occurrence: None)
  Receive Date: 20110427
  Receipt Date: 20110419
  Transmission Date: 20111010
  Serious: Yes (Hospitalization)
  Sender: FDA-Public Use
  Company Number: JP-BRISTOL-MYERS SQUIBB COMPANY-15214430

PATIENT
  Age: 62 Year
  Sex: Female
  Weight: 50 kg

DRUGS (8)
  1. CISPLATIN [Suspect]
     Indication: GASTROOESOPHAGEAL CANCER
     Dosage: ON DAY 1 OF CYCLE
     Route: 042
     Dates: start: 20100715, end: 20100715
  2. SENNOSIDE A+B [Concomitant]
     Route: 048
     Dates: start: 20100701, end: 20100701
  3. MORPHINE HCL [Concomitant]
     Route: 042
     Dates: start: 20100702, end: 20100704
  4. SOLULACT [Concomitant]
     Dates: start: 20100717, end: 20100718
  5. REMIFENTANIL HCL [Concomitant]
     Route: 042
     Dates: start: 20100702, end: 20100702
  6. FENTANYL CITRATE [Concomitant]
     Route: 042
     Dates: start: 20100702, end: 20100702
  7. XELODA [Suspect]
     Indication: GASTROOESOPHAGEAL CANCER
     Dosage: FORMULATION:TAB.ON DAY 1:15 REC INF ON 22-JUL-2010
     Route: 048
     Dates: start: 20100715, end: 20100722
  8. FUROSEMIDE [Concomitant]
     Dates: start: 20100716, end: 20100717

REACTIONS (1)
  - CARDIOMYOPATHY [None]
